FAERS Safety Report 4549347-9 (Version None)
Quarter: 2005Q1

REPORT INFORMATION
  Report Type: 
  Country: None (occurrence: None)
  Receive Date: 20050110
  Receipt Date: 20050110
  Transmission Date: 20050727
  Serious: Yes (Hospitalization, Other)
  Sender: FDA-Public Use
  Company Number: None

PATIENT
  Age: 48 Year
  Sex: Male

DRUGS (3)
  1. CORICIDIN D SRT [Suspect]
     Indication: SINUS HEADACHE
     Dosage: UNKNOWN ORAL
     Route: 048
     Dates: start: 20000101, end: 20000606
  2. ACETAMINOPHEN [Concomitant]
  3. IBUPROFEN [Concomitant]

REACTIONS (3)
  - CEREBRAL HAEMORRHAGE [None]
  - CEREBROVASCULAR ACCIDENT [None]
  - DEPRESSION [None]
